FAERS Safety Report 22376851 (Version 1)
Quarter: 2023Q2

REPORT INFORMATION
  Report Type: Spontaneous
  Country: DE (occurrence: DE)
  Receive Date: 20230529
  Receipt Date: 20230529
  Transmission Date: 20230721
  Serious: Yes (Other)
  Sender: FDA-Public Use
  Company Number: DE-002147023-NVSC2023DE120142

PATIENT
  Sex: Female

DRUGS (2)
  1. KESIMPTA [Suspect]
     Active Substance: OFATUMUMAB
     Indication: Multiple sclerosis
     Dosage: 20 MG
     Route: 065
  2. CORTISONE [Suspect]
     Active Substance: CORTISONE
     Indication: Multiple sclerosis
     Dosage: UNK (HIGH DOSE)
     Route: 065

REACTIONS (1)
  - Transaminases increased [Recovering/Resolving]
